FAERS Safety Report 5302176-0 (Version None)
Quarter: 2007Q2

REPORT INFORMATION
  Report Type: 
  Country: None (occurrence: None)
  Receive Date: 20070419
  Receipt Date: 20070412
  Transmission Date: 20071010
  Serious: Yes (Other)
  Sender: FDA-Public Use
  Company Number: GB-GLAXOSMITHKLINE-B0466919A

PATIENT
  Age: 45 Year
  Sex: Male

DRUGS (1)
  1. NICOTINE [Suspect]
     Route: 062

REACTIONS (3)
  - NEOPLASM MALIGNANT [None]
  - VASOCONSTRICTION [None]
  - VASOSPASM [None]
